FAERS Safety Report 6550902-5 (Version None)
Quarter: 2010Q1

REPORT INFORMATION
  Report Type: 
  Country: None (occurrence: None)
  Receive Date: 20100125
  Receipt Date: 20100119
  Transmission Date: 20100710
  Serious: Yes (Other)
  Sender: FDA-Public Use
  Company Number: US-SANOFI-AVENTIS-A03200904797

PATIENT
  Age: 68 Year
  Sex: Male
  Weight: 109.5 kg

DRUGS (5)
  1. ELIGARD [Suspect]
     Indication: PROSTATE CANCER
     Dosage: DOSE TEXT: 45 MG EVERY SIX MONTHSUNIT DOSE: 45 MG
     Route: 058
     Dates: start: 20090806, end: 20090806
  2. LISINOPRIL [Concomitant]
  3. HYDROCHLOROTHIAZIDE [Concomitant]
  4. CALCIUM/VITAMIN D [Concomitant]
  5. CENTRUM SILVER [Concomitant]

REACTIONS (9)
  - EXCESSIVE GRANULATION TISSUE [None]
  - FOREIGN BODY [None]
  - IMPAIRED HEALING [None]
  - INJECTION SITE DISCHARGE [None]
  - INJECTION SITE ERYTHEMA [None]
  - INJECTION SITE INFECTION [None]
  - INJECTION SITE MASS [None]
  - INJECTION SITE REACTION [None]
  - PAIN [None]
